FAERS Safety Report 8311411-6 (Version None)
Quarter: 2012Q2

REPORT INFORMATION
  Report Type: 
  Country: None (occurrence: None)
  Receive Date: 20120425
  Receipt Date: 20120126
  Transmission Date: 20120825
  Serious: No
  Sender: FDA-Public Use
  Company Number: US-MYLANLABS-2012S1002095

PATIENT
  Age: 77 Year
  Sex: Female

DRUGS (1)
  1. IPRATROPIUM BROMIDE AND ALBUTEROL SULFATE [Suspect]
     Indication: WHEEZING
     Route: 055
     Dates: start: 20111230, end: 20120126

REACTIONS (5)
  - NASOPHARYNGITIS [None]
  - WHEEZING [None]
  - CONSTIPATION [None]
  - FATIGUE [None]
  - MUSCLE SPASMS [None]
